FAERS Safety Report 6232618-8 (Version None)
Quarter: 2009Q2

REPORT INFORMATION
  Report Type: 
  Country: None (occurrence: None)
  Receive Date: 20090612
  Receipt Date: 20090612
  Transmission Date: 20091009
  Serious: No
  Sender: FDA-Public Use
  Company Number: None

PATIENT
  Sex: Female
  Weight: 77.1115 kg

DRUGS (1)
  1. CITALOPRAM HYDROBROMIDE [Suspect]
     Indication: ANXIETY
     Dosage: 20 MG. PILL ONCE ORAL
     Route: 048
     Dates: start: 20090520

REACTIONS (3)
  - MIDDLE INSOMNIA [None]
  - PRURITUS [None]
  - VOMITING [None]
